FAERS Safety Report 6103706-1 (Version None)
Quarter: 2009Q1

REPORT INFORMATION
  Report Type: 
  Country: None (occurrence: None)
  Receive Date: 20090305
  Receipt Date: 20090218
  Transmission Date: 20090719
  Serious: Yes (Hospitalization)
  Sender: FDA-Public Use
  Company Number: PHHY2008MX07069

PATIENT
  Age: 79 Year
  Sex: Female

DRUGS (1)
  1. DIOVAN HCT [Suspect]
     Indication: HYPERTENSION
     Dosage: 80/12.5 MG DAILY
     Route: 048
     Dates: start: 20060801, end: 20080427

REACTIONS (4)
  - ARTHRALGIA [None]
  - BACK PAIN [None]
  - ROAD TRAFFIC ACCIDENT [None]
  - SURGERY [None]
